FAERS Safety Report 14928746 (Version 1)
Quarter: 2020Q3

REPORT INFORMATION
  Report Type: Report from Study
  Country: KR (occurrence: KR)
  Receive Date: 20180523
  Receipt Date: 20180523
  Transmission Date: 20201105
  Serious: Yes (Hospitalization)
  Sender: FDA-Public Use
  Company Number: KR-JNJFOC-20180500763

PATIENT
  Age: 73 Year
  Sex: Male
  Weight: 55.3 kg

DRUGS (14)
  1. IBRUTINIB [Suspect]
     Active Substance: IBRUTINIB
     Route: 048
  2. BENZYDAMINE HYDROCHLORIDE [Concomitant]
     Active Substance: BENZYDAMINE HYDROCHLORIDE
     Indication: MUCOSAL INFLAMMATION
     Dosage: AS NEEDED
     Dates: start: 20180222
  3. CETUXIMAB. [Suspect]
     Active Substance: CETUXIMAB
     Indication: COLORECTAL ADENOCARCINOMA
     Dosage: 2430.37988 MG/M2
     Route: 042
     Dates: start: 20180213, end: 20180413
  4. PARACETAMOL [Concomitant]
     Active Substance: ACETAMINOPHEN
     Indication: COUGH
     Dates: start: 201802
  5. LOPMIN [Concomitant]
     Indication: DIARRHOEA
     Route: 048
  6. IBRUTINIB [Suspect]
     Active Substance: IBRUTINIB
     Indication: COLORECTAL ADENOCARCINOMA
     Route: 048
     Dates: start: 20180213, end: 20180413
  7. MUPIROCIN. [Concomitant]
     Active Substance: MUPIROCIN
     Indication: RASH
     Dosage: (2%, 10 G OINTMENT AS NEEDED)
     Route: 061
     Dates: start: 20180302
  8. NORVASC [Concomitant]
     Active Substance: AMLODIPINE BESYLATE
     Indication: HYPERTENSION
     Route: 048
     Dates: start: 2008
  9. OXATIN [Concomitant]
     Indication: COUGH
     Route: 048
     Dates: start: 201802
  10. ALBIS [Concomitant]
     Active Substance: BISMUTH SUBCITRATE\RANITIDINE HYDROCHLORIDE\SUCRALFATE
     Indication: COUGH
     Dates: start: 201802
  11. ALBIS [Concomitant]
     Active Substance: BISMUTH SUBCITRATE\RANITIDINE HYDROCHLORIDE\SUCRALFATE
     Indication: DIARRHOEA
     Dates: start: 201802
  12. BUSCOPAN [Concomitant]
     Active Substance: BUTYLSCOPOLAMINE BROMIDE
     Indication: DIARRHOEA
     Route: 048
     Dates: start: 20180307
  13. CODENING [Concomitant]
     Indication: COUGH
     Dates: start: 201802
  14. CLINDAMYCIN HYDROCHLORIDE. [Concomitant]
     Active Substance: CLINDAMYCIN HYDROCHLORIDE
     Indication: RASH
     Dosage: (1%) AS NEEDED
     Route: 061
     Dates: start: 20180222

REACTIONS (1)
  - Pneumonitis [Not Recovered/Not Resolved]

NARRATIVE: CASE EVENT DATE: 20180417
